FAERS Safety Report 5402882-3 (Version None)
Quarter: 2007Q3

REPORT INFORMATION
  Report Type: 
  Country: None (occurrence: None)
  Receive Date: 20070718
  Receipt Date: 20061004
  Transmission Date: 20080115
  Serious: Yes (Hospitalization, Disabling, Other)
  Sender: FDA-Public Use
  Company Number: 2006114911

PATIENT
  Age: 51 Year
  Sex: Female
  Weight: 65.7716 kg

DRUGS (2)
  1. CELEBREX [Suspect]
     Indication: OSTEOARTHRITIS
     Dosage: 400 MG (200 MG,2 IN 1 D)
     Dates: start: 20001005
  2. CELEBREX [Suspect]
     Indication: PAIN MANAGEMENT
     Dosage: 400 MG (200 MG,2 IN 1 D)
     Dates: start: 20001005

REACTIONS (1)
  - CEREBROVASCULAR ACCIDENT [None]
